FAERS Safety Report 8769586 (Version 2)
Quarter: 2012Q4

REPORT INFORMATION
  Report Type: 
  Country: AU (occurrence: AU)
  Receive Date: 20120905
  Receipt Date: 20120905
  Transmission Date: 20130627
  Serious: Yes (Hospitalization, Other)
  Sender: FDA-Public Use
  Company Number: PHHY2012AU054601

PATIENT
  Age: 65 Year
  Sex: Male
  Weight: 86.5 kg

DRUGS (8)
  1. CLOZARIL [Suspect]
     Dosage: 400 mg
     Route: 048
     Dates: start: 19990525
  2. CLOZARIL [Suspect]
     Dosage: 350 mg
     Route: 048
     Dates: start: 20120828
  3. ANTIBIOTICS [Concomitant]
     Dates: start: 20120825
  4. ZACTIN [Concomitant]
  5. PANAMAX [Concomitant]
  6. GABAPENTIN [Concomitant]
  7. SOMAC [Concomitant]
  8. BUPRENORPHINE [Concomitant]
     Dosage: 15 mg, UNK

REACTIONS (11)
  - Neutropenia [Recovered/Resolved]
  - White blood cell count decreased [Recovered/Resolved]
  - Upper respiratory tract infection [Recovering/Resolving]
  - Productive cough [Unknown]
  - Wheezing [Unknown]
  - Rhinorrhoea [Unknown]
  - Haemoglobin decreased [Unknown]
  - Pyrexia [Not Recovered/Not Resolved]
  - Lower respiratory tract infection [Unknown]
  - Lung infection [Unknown]
  - Pneumonia [Unknown]
